FAERS Safety Report 6247698-3 (Version None)
Quarter: 2009Q2

REPORT INFORMATION
  Report Type: 
  Country: None (occurrence: None)
  Receive Date: 20090626
  Receipt Date: 20090619
  Transmission Date: 20091009
  Serious: Yes (Hospitalization)
  Sender: FDA-Public Use
  Company Number: FR-WYE-G03615409

PATIENT
  Sex: Male
  Weight: 80 kg

DRUGS (2)
  1. TORISEL [Suspect]
     Indication: RENAL CANCER METASTATIC
     Route: 042
     Dates: start: 20090410, end: 20090424
  2. AVASTIN [Suspect]
     Indication: RENAL CANCER METASTATIC
     Route: 042
     Dates: start: 20090410, end: 20090424

REACTIONS (1)
  - PNEUMOTHORAX [None]
